FAERS Safety Report 9372905 (Version 2)
Quarter: 2013Q2

REPORT INFORMATION
  Report Type: Spontaneous
  Country: FI (occurrence: FI)
  Receive Date: 20130627
  Receipt Date: 20130627
  Transmission Date: 20140414
  Serious: Yes (Other)
  Sender: FDA-Public Use
  Company Number: FI-JNJFOC-20130613666

PATIENT
  Age: 26 Year
  Sex: Female

DRUGS (4)
  1. REMICADE [Suspect]
     Indication: JUVENILE IDIOPATHIC ARTHRITIS
     Route: 042
     Dates: start: 20130612
  2. REMICADE [Suspect]
     Indication: JUVENILE IDIOPATHIC ARTHRITIS
     Route: 042
     Dates: start: 20130410, end: 20130410
  3. REMICADE [Suspect]
     Indication: JUVENILE IDIOPATHIC ARTHRITIS
     Route: 042
     Dates: start: 2003, end: 20130227
  4. CORTISONE [Suspect]
     Indication: ARTHRALGIA
     Route: 065

REACTIONS (4)
  - Bacterial toxaemia [Recovered/Resolved]
  - Exposure during pregnancy [Recovered/Resolved]
  - Arthralgia [Unknown]
  - Off label use [Unknown]
